FAERS Safety Report 9860576 (Version 1)
Quarter: 2014Q1

REPORT INFORMATION
  Report Type: Report from Study
  Country: NL (occurrence: NL)
  Receive Date: 20140202
  Receipt Date: 20140202
  Transmission Date: 20141002
  Serious: Yes (Hospitalization)
  Sender: FDA-Public Use
  Company Number: NL-CELGENEUS-114-21660-14013395

PATIENT
  Age: 68 Year
  Sex: Female

DRUGS (7)
  1. ABRAXANE [Suspect]
     Indication: PANCREATIC CARCINOMA METASTATIC
     Dosage: 200 MILLIGRAM
     Route: 065
     Dates: start: 20131220
  2. ABRAXANE [Suspect]
     Dosage: 200 MILLIGRAM
     Route: 065
     Dates: start: 20131227, end: 20131228
  3. GEMCITABINE [Suspect]
     Indication: PANCREATIC CARCINOMA METASTATIC
     Route: 065
     Dates: start: 20131220, end: 20131228
  4. GEMCITABINE [Suspect]
     Route: 065
     Dates: start: 20131227
  5. KYTRIL [Concomitant]
     Indication: PRODUCT USED FOR UNKNOWN INDICATION
     Route: 041
     Dates: start: 20131227, end: 20140106
  6. METOCLOPRAMIDE [Concomitant]
     Indication: PRODUCT USED FOR UNKNOWN INDICATION
     Route: 041
     Dates: start: 20131227, end: 20140106
  7. DEXAMETHASONE [Concomitant]
     Indication: PRODUCT USED FOR UNKNOWN INDICATION
     Route: 041
     Dates: start: 20131227, end: 20140106

REACTIONS (1)
  - Colitis [Recovered/Resolved]
